FAERS Safety Report 8413960-9 (Version None)
Quarter: 2012Q2

REPORT INFORMATION
  Report Type: 
  Country: None (occurrence: None)
  Receive Date: 20120323
  Receipt Date: 20110606
  Transmission Date: 20120825
  Serious: Yes (Other)
  Sender: FDA-Public Use
  Company Number: 163-21880-11060934

PATIENT

DRUGS (7)
  1. ASPIRIN [Concomitant]
  2. REVLIMID [Suspect]
     Indication: B-CELL LYMPHOMA
     Dosage: 15-20-25 MG, DAYS 1-10, PO
     Route: 048
  3. DOXORUBICIN HCL [Suspect]
     Indication: B-CELL LYMPHOMA
  4. PEGFILGRASTIM (PEGFILGRASTIM) [Concomitant]
  5. PREDNISONE TAB [Suspect]
     Indication: B-CELL LYMPHOMA
  6. CYCLOPHOSPHAMIDE [Suspect]
     Indication: B-CELL LYMPHOMA
  7. VINCRISTINE [Suspect]
     Indication: B-CELL LYMPHOMA

REACTIONS (6)
  - THROMBOCYTOPENIA [None]
  - DEHYDRATION [None]
  - THROMBOSIS [None]
  - FEBRILE NEUTROPENIA [None]
  - FATIGUE [None]
  - NEUTROPENIA [None]
